FAERS Safety Report 6537528-4 (Version None)
Quarter: 2010Q1

REPORT INFORMATION
  Report Type: 
  Country: None (occurrence: None)
  Receive Date: 20100114
  Receipt Date: 20100104
  Transmission Date: 20100710
  Serious: Yes (Life-Threatening)
  Sender: FDA-Public Use
  Company Number: FR-GENENTECH-296645

PATIENT
  Sex: Female

DRUGS (15)
  1. RITUXIMAB [Suspect]
     Indication: B-CELL LYMPHOMA
     Dosage: 375 MG/M2, UNK
     Route: 042
     Dates: start: 20091129, end: 20091129
  2. LEVOTHYROXINE SODIUM [Concomitant]
     Dosage: 75 A?G, UNK
  3. KARDEGIC [Concomitant]
     Dosage: 75 MG, UNK
  4. HYPNOVEL [Concomitant]
     Dosage: UNK
  5. FENTANYL [Concomitant]
     Dosage: UNK
  6. LAROXYL [Concomitant]
     Dosage: UNK
  7. SOLUPRED [Concomitant]
     Dosage: UNK
  8. CHLORAMINOPHENE [Concomitant]
     Dosage: UNK
  9. DOXORUBICIN HCL [Concomitant]
     Dosage: 50 MG/M2, UNK
     Dates: start: 20091129, end: 20091129
  10. VINCRISTINE [Concomitant]
     Dosage: 1.4 MG/M2, UNK
     Dates: start: 20091129, end: 20091129
  11. PREDNISONE [Concomitant]
     Dosage: 100 MG/M2, UNK
     Dates: start: 20091129, end: 20091129
  12. ROCEPHIN [Concomitant]
     Dosage: UNK
     Dates: start: 20091122
  13. OFLOCET [Concomitant]
     Dosage: UNK
     Dates: start: 20091122
  14. SOLU-MEDROL [Concomitant]
     Dosage: 20 MG, UNK
  15. SOLU-MEDROL [Concomitant]
     Dosage: ON 28 NOV 2009, ADMINISTERED BOLUS DOSE
     Dates: start: 20091102

REACTIONS (1)
  - PULMONARY ALVEOLAR HAEMORRHAGE [None]
